FAERS Safety Report 8336689-4 (Version None)
Quarter: 2012Q2

REPORT INFORMATION
  Report Type: 
  Country: None (occurrence: None)
  Receive Date: 20120504
  Receipt Date: 20120426
  Transmission Date: 20120825
  Serious: No
  Sender: FDA-Public Use
  Company Number: US-BAYER-2012-041414

PATIENT
  Sex: Female

DRUGS (1)
  1. MIRENA [Suspect]
     Dosage: 20 MCG/24HR, CONT
     Dates: start: 20100101

REACTIONS (5)
  - MENSTRUATION DELAYED [None]
  - BREAST SWELLING [None]
  - FEELING ABNORMAL [None]
  - UTERINE PAIN [None]
  - BREAST PAIN [None]
